FAERS Safety Report 16423019 (Version 1)
Quarter: 2019Q2

REPORT INFORMATION
  Report Type: Spontaneous
  Country: US (occurrence: US)
  Receive Date: 20190612
  Receipt Date: 20190612
  Transmission Date: 20190711
  Serious: No
  Sender: FDA-Public Use
  Company Number: US-PFIZER INC-2019196479

PATIENT
  Age: 8 Year
  Sex: Male
  Weight: 18.14 kg

DRUGS (2)
  1. GENOTROPIN [Suspect]
     Active Substance: SOMATROPIN
     Indication: GROWTH HORMONE DEFICIENCY
     Dosage: 0.8 MG, DAILY (ONCE AT NIGHT)
     Dates: start: 20190320
  2. METHYLPHENIDATE. [Concomitant]
     Active Substance: METHYLPHENIDATE
     Indication: ATTENTION DEFICIT/HYPERACTIVITY DISORDER
     Dosage: ONE AND A HALF TABLET , TWICE A DAY
     Route: 048

REACTIONS (4)
  - Arthralgia [Unknown]
  - Bone pain [Unknown]
  - Device issue [Unknown]
  - Product dose omission [Unknown]
